FAERS Safety Report 17374769 (Version 1)
Quarter: 2020Q1

REPORT INFORMATION
  Report Type: Spontaneous
  Country: US (occurrence: US)
  Receive Date: 20200122
  Receipt Date: 20200122
  Transmission Date: 20200409
  Serious: Yes (Hospitalization)
  Sender: FDA-Public Use
  Company Number: None

PATIENT
  Age: 67 Year
  Sex: Male
  Weight: 54 kg

DRUGS (1)
  1. INSULIN (INSULIN, GLARGINE, HUMAN 100UNIT/ML INJ, SOLOSTAR, 3ML) [Suspect]
     Active Substance: INSULIN GLARGINE
     Indication: DIABETES MELLITUS
     Dosage: ?          OTHER FREQUENCY:PM;?
     Route: 058
     Dates: start: 20190101, end: 20191009

REACTIONS (5)
  - Hyperglycaemia [None]
  - Glycosylated haemoglobin increased [None]
  - Fall [None]
  - Hypophagia [None]
  - Treatment noncompliance [None]

NARRATIVE: CASE EVENT DATE: 20191011
